FAERS Safety Report 9978728 (Version 1)
Quarter: 2014Q1

REPORT INFORMATION
  Report Type: Report from Study
  Country: US (occurrence: US)
  Receive Date: 20140306
  Receipt Date: 20140306
  Transmission Date: 20141002
  Serious: No
  Sender: FDA-Public Use
  Company Number: US-ABBVIE-13P-163-1168976-00

PATIENT
  Age: 61 Year
  Sex: Male
  Weight: 88.08 kg

DRUGS (1)
  1. HUMIRA [Suspect]
     Indication: CROHN^S DISEASE
     Route: 058
     Dates: start: 20131019, end: 20131019

REACTIONS (1)
  - Gastrointestinal obstruction [Unknown]
